FAERS Safety Report 8010477-0 (Version None)
Quarter: 2011Q4

REPORT INFORMATION
  Report Type: 
  Country: None (occurrence: None)
  Receive Date: 20111123
  Receipt Date: 20110823
  Transmission Date: 20120403
  Serious: No
  Sender: FDA-Public Use
  Company Number: 334163

PATIENT
  Age: 68 Year
  Sex: Male
  Weight: 132.9 kg

DRUGS (3)
  1. LANTUS [Suspect]
     Indication: TYPE 2 DIABETES MELLITUS
     Dosage: 25 U, QD 8 U, QD
     Dates: start: 20110801
  2. LANTUS [Suspect]
     Indication: TYPE 2 DIABETES MELLITUS
     Dosage: 25 U, QD 8 U, QD
     Dates: end: 20110801
  3. VICTOZA [Suspect]
     Indication: TYPE 2 DIABETES MELLITUS
     Dosage: 0.6 MG, QD
     Dates: start: 20110801

REACTIONS (2)
  - INCOHERENT [None]
  - BLOOD GLUCOSE DECREASED [None]
